FAERS Safety Report 18877689 (Version 1)
Quarter: 2021Q1

REPORT INFORMATION
  Report Type: Spontaneous
  Country: US (occurrence: US)
  Receive Date: 20210210
  Receipt Date: 20210210
  Transmission Date: 20210420
  Serious: No
  Sender: FDA-Public Use
  Company Number: None

PATIENT
  Sex: Male

DRUGS (1)
  1. NUBEQA [Suspect]
     Active Substance: DAROLUTAMIDE
     Indication: MYELODYSPLASTIC SYNDROME
     Route: 048
     Dates: start: 202001

REACTIONS (2)
  - Metastasis [None]
  - Malignant neoplasm progression [None]
